FAERS Safety Report 4647693-1 (Version None)
Quarter: 2005Q2

REPORT INFORMATION
  Report Type: 
  Country: None (occurrence: None)
  Receive Date: 20050426
  Receipt Date: 20050413
  Transmission Date: 20051028
  Serious: Yes (Hospitalization, Other)
  Sender: FDA-Public Use
  Company Number: 2005059018

PATIENT
  Age: 72 Year
  Sex: Female

DRUGS (3)
  1. CELEBREX [Suspect]
     Indication: ARTHRITIS
     Dosage: 200 MG (200 MG 1 IN 1 D) ORAL
     Route: 048
     Dates: start: 20050101
  2. BISOPROLOL FUMARATE AND HYDROCHLOROTHIAZIDE [Concomitant]
  3. CLONAZEPAM [Concomitant]

REACTIONS (6)
  - ARTHRITIS [None]
  - CHOLELITHIASIS [None]
  - DISEASE RECURRENCE [None]
  - PAIN [None]
  - PANCREATITIS [None]
  - WEIGHT DECREASED [None]
